FAERS Safety Report 6760790-X (Version None)
Quarter: 2010Q2

REPORT INFORMATION
  Report Type: 
  Country: None (occurrence: None)
  Receive Date: 20100608
  Receipt Date: 20100524
  Transmission Date: 20101027
  Serious: Yes (Hospitalization)
  Sender: FDA-Public Use
  Company Number: FR-MERCK-1005FRA00008

PATIENT
  Age: 66 Year
  Sex: Male

DRUGS (10)
  1. ZOCOR [Suspect]
     Route: 048
     Dates: end: 20100409
  2. ASPIRIN LYSINE [Concomitant]
     Route: 065
  3. BROMAZEPAM [Concomitant]
     Route: 065
  4. CITALOPRAM HYDROBROMIDE [Concomitant]
     Route: 065
  5. DILTIAZEM HYDROCHLORIDE [Concomitant]
     Route: 065
  6. TINZAPARIN SODIUM [Concomitant]
     Route: 065
  7. FUROSEMIDE [Concomitant]
     Route: 065
  8. FUSIDATE SODIUM [Suspect]
     Indication: DEVICE RELATED INFECTION
     Route: 048
     Dates: start: 20100323, end: 20100412
  9. LEVOFLOXACIN [Suspect]
     Indication: DEVICE RELATED INFECTION
     Route: 048
     Dates: start: 20100128, end: 20100412
  10. RABEPRAZOLE SODIUM [Concomitant]
     Route: 065

REACTIONS (4)
  - BLOOD CREATINE PHOSPHOKINASE INCREASED [None]
  - DRUG INTERACTION [None]
  - MYALGIA [None]
  - RHABDOMYOLYSIS [None]
